FAERS Safety Report 23148739 (Version 1)
Quarter: 2023Q4

REPORT INFORMATION
  Report Type: Spontaneous
  Country: US (occurrence: US)
  Receive Date: 20231106
  Receipt Date: 20231106
  Transmission Date: 20240110
  Serious: No
  Sender: FDA-Public Use
  Company Number: US-BPL01-004452

PATIENT
  Age: 23 Year
  Sex: Female
  Weight: 79.379 kg

DRUGS (6)
  1. GAMMAPLEX [Suspect]
     Active Substance: HUMAN IMMUNOGLOBULIN G
     Indication: Eosinophilic fasciitis
     Dosage: 160 GRAMS OVER 5 DAYS EVERY 4 WEEKS (30 GRAMS DAYS 1-3, 35 GRAMS DAYS 4-5). SHE INFUSED 30 GRAMS ...
     Route: 065
     Dates: start: 20230318, end: 20230709
  2. GAMMAPLEX [Suspect]
     Active Substance: HUMAN IMMUNOGLOBULIN G
     Indication: Eosinophilic fasciitis
     Dosage: 160 GRAMS OVER 5 DAYS EVERY 4 WEEKS (30 GRAMS DAYS 1-3, 35 GRAMS DAYS 4-5). SHE INFUSED 30 GRAMS ...
     Route: 065
     Dates: start: 20230318, end: 20230709
  3. SERTRALINE [Concomitant]
     Active Substance: SERTRALINE HYDROCHLORIDE
  4. LEVOTHYROXINE [Concomitant]
     Active Substance: LEVOTHYROXINE
  5. MYFORTIC [Concomitant]
     Active Substance: MYCOPHENOLATE SODIUM
  6. CLOBETASOL [Concomitant]
     Active Substance: CLOBETASOL

REACTIONS (3)
  - Condition aggravated [Recovered/Resolved]
  - Off label use [Unknown]
  - Wrong technique in product usage process [Unknown]
